FAERS Safety Report 6330340-0 (Version None)
Quarter: 2009Q3

REPORT INFORMATION
  Report Type: 
  Country: None (occurrence: None)
  Receive Date: 20090827
  Receipt Date: 20090819
  Transmission Date: 20100115
  Serious: Yes (Other)
  Sender: FDA-Public Use
  Company Number: US-RANBAXY-2009US-25788

PATIENT

DRUGS (4)
  1. ISOTRETINOIN [Suspect]
     Indication: DRUG USE FOR UNKNOWN INDICATION
     Dosage: 40 MG, UNK
     Route: 048
  2. ACCUTANE [Suspect]
     Indication: DRUG USE FOR UNKNOWN INDICATION
     Dosage: 40 MG, QD ALTERNATING WITH BID
     Route: 048
     Dates: start: 20090406, end: 20090721
  3. ACCUTANE [Suspect]
     Dosage: UNK
     Route: 048
     Dates: start: 20080324, end: 20080924
  4. ISOTRETINOIN [Suspect]
     Route: 048

REACTIONS (1)
  - PREGNANCY TEST FALSE POSITIVE [None]
